FAERS Safety Report 15402127 (Version 2)
Quarter: 2018Q3

REPORT INFORMATION
  Report Type: Spontaneous
  Country: US (occurrence: US)
  Receive Date: 20180919
  Receipt Date: 20180924
  Transmission Date: 20181010
  Serious: Yes (Other)
  Sender: FDA-Public Use
  Company Number: US-PFIZER INC-2018375061

PATIENT
  Age: 18 Year
  Sex: Female

DRUGS (7)
  1. ETOPOSIDE. [Suspect]
     Active Substance: ETOPOSIDE
     Indication: PRIMARY MEDIASTINAL LARGE B-CELL LYMPHOMA
     Dosage: UNK, CYCLIC (DOSE?ADJUSTED, AFTER CYCLE 2, TOTAL OF 6 CYCLES)
  2. CYCLOPHOSPHAMIDE. [Suspect]
     Active Substance: CYCLOPHOSPHAMIDE
     Indication: PRIMARY MEDIASTINAL LARGE B-CELL LYMPHOMA
     Dosage: UNK, CYCLIC (DOSE?ADJUSTED, AFTER CYCLE 2, TOTAL OF 6 CYCLES)
  3. RITUXIMAB. [Suspect]
     Active Substance: RITUXIMAB
     Indication: PRIMARY MEDIASTINAL LARGE B-CELL LYMPHOMA
     Dosage: UNK, CYCLIC (DOSE?ADJUSTED, AFTER CYCLE 2, TOTAL OF 6 CYCLES)
  4. PREDNISONE. [Suspect]
     Active Substance: PREDNISONE
     Indication: PRIMARY MEDIASTINAL LARGE B-CELL LYMPHOMA
     Dosage: UNK, CYCLIC (DOSE?ADJUSTED, AFTER CYCLE 2, TOTAL OF 6 CYCLES)
  5. ENOXAPARIN [Concomitant]
     Active Substance: ENOXAPARIN
     Indication: PROPHYLAXIS
     Dosage: UNK
  6. VINCRISTINE SULFATE. [Suspect]
     Active Substance: VINCRISTINE SULFATE
     Indication: PRIMARY MEDIASTINAL LARGE B-CELL LYMPHOMA
     Dosage: UNK, CYCLIC (DOSE?ADJUSTED, AFTER CYCLE 2, TOTAL OF 6 CYCLES)
  7. DOXORUBICIN HCL [Suspect]
     Active Substance: DOXORUBICIN HYDROCHLORIDE
     Indication: PRIMARY MEDIASTINAL LARGE B-CELL LYMPHOMA
     Dosage: UNK, CYCLIC (DOSE?ADJUSTED, AFTER CYCLE 2, TOTAL OF 6 CYCLES)

REACTIONS (1)
  - Febrile neutropenia [Unknown]
